FAERS Safety Report 12132357 (Version 1)
Quarter: 2016Q1

REPORT INFORMATION
  Report Type: Spontaneous
  Country: US (occurrence: US)
  Receive Date: 20160301
  Receipt Date: 20160301
  Transmission Date: 20160526
  Serious: Yes (Other)
  Sender: FDA-Public Use
  Company Number: US-APOTEX-2015AP015683

PATIENT
  Age: 18 Year
  Sex: Female

DRUGS (4)
  1. LEVETIRACETAM. [Suspect]
     Active Substance: LEVETIRACETAM
     Indication: PETIT MAL EPILEPSY
     Dosage: 2000 MG, QD
     Route: 065
  2. LAMOTRIGINE. [Suspect]
     Active Substance: LAMOTRIGINE
     Dosage: 400 MG, QD
     Route: 065
  3. LAMOTRIGINE. [Suspect]
     Active Substance: LAMOTRIGINE
     Indication: PETIT MAL EPILEPSY
     Dosage: 100 MG, QD
     Route: 065
  4. LEVETIRACETAM. [Suspect]
     Active Substance: LEVETIRACETAM
     Dosage: GRADUALLY REDUCED TO 500 MG, QD

REACTIONS (14)
  - Hunger [Unknown]
  - Thrombocytopenia [Recovered/Resolved]
  - Insomnia [Unknown]
  - Neuralgia [Recovered/Resolved]
  - Anxiety [Recovered/Resolved]
  - Weight increased [Unknown]
  - Acquired epileptic aphasia [Recovering/Resolving]
  - Eczema [Unknown]
  - Bradycardia [Unknown]
  - Hypotension [Unknown]
  - Epilepsy [Recovered/Resolved]
  - Electroencephalogram abnormal [Recovering/Resolving]
  - Cognitive disorder [Recovering/Resolving]
  - Migraine [Recovered/Resolved]
